FAERS Safety Report 10261727 (Version 1)
Quarter: 2014Q2

REPORT INFORMATION
  Report Type: Spontaneous
  Country: PT (occurrence: PT)
  Receive Date: 20140626
  Receipt Date: 20140626
  Transmission Date: 20141212
  Serious: Yes (Hospitalization, Other)
  Sender: FDA-Public Use
  Company Number: PHHY2014PT075301

PATIENT
  Age: 10 Year
  Sex: Female
  Weight: 27 kg

DRUGS (11)
  1. ISONIAZID [Suspect]
     Indication: PULMONARY TUBERCULOSIS
     Dosage: 300 MG, PER DAY
  2. RIFAMPICIN [Suspect]
     Indication: PULMONARY TUBERCULOSIS
     Dosage: 600 MG, PER DAY
  3. ETHAMBUTOL [Suspect]
     Indication: PULMONARY TUBERCULOSIS
     Dosage: 400 MG PER DAY
  4. PYRAZINAMIDE [Suspect]
     Indication: PULMONARY TUBERCULOSIS
     Dosage: 900 MGPER DAY
  5. LINEZOLID [Suspect]
     Indication: PULMONARY TUBERCULOSIS
     Dosage: 600 MG PER DAY
  6. CIPROFLOXACIN [Suspect]
  7. AMOXICILLIN [Concomitant]
     Dosage: 100 MG/KG PER DAY
  8. LEVOFLOXACIN [Concomitant]
     Indication: PULMONARY TUBERCULOSIS
     Dosage: 250 MG PER DAY
  9. PARA-AMINOSALICYLIC ACID [Concomitant]
     Indication: PULMONARY TUBERCULOSIS
     Dosage: 4 G PER DAY
  10. CYCLOSERIN [Concomitant]
     Indication: PULMONARY TUBERCULOSIS
     Dosage: 500 MG PER DAY
  11. AMIKACIN [Concomitant]
     Indication: PULMONARY TUBERCULOSIS
     Dosage: 500 MG PER DAY

REACTIONS (12)
  - Bone marrow failure [Recovering/Resolving]
  - Haemoglobin decreased [Recovering/Resolving]
  - Reticulocyte count decreased [Recovering/Resolving]
  - White blood cell count decreased [Recovering/Resolving]
  - Platelet count decreased [Recovering/Resolving]
  - Neutrophil count decreased [Recovering/Resolving]
  - Anaemia [Recovered/Resolved]
  - Synovitis [Recovered/Resolved]
  - Oedema peripheral [Recovered/Resolved]
  - Arthralgia [Recovered/Resolved]
  - Abasia [Recovered/Resolved]
  - Drug resistance [Unknown]
